FAERS Safety Report 9055764 (Version 17)
Quarter: 2013Q4

REPORT INFORMATION
  Report Type: Report from Study
  Country: CA (occurrence: CA)
  Receive Date: 20130206
  Receipt Date: 20131125
  Transmission Date: 20140711
  Serious: Yes (Hospitalization, Other)
  Sender: FDA-Public Use
  Company Number: CA-ROCHE-1184744

PATIENT
  Age: 66 Year
  Sex: Male
  Weight: 70 kg

DRUGS (9)
  1. AVASTIN [Suspect]
     Indication: GLIOBLASTOMA
     Route: 042
     Dates: start: 20110111
  2. AVASTIN [Suspect]
     Route: 042
     Dates: start: 20130111
  3. AVASTIN [Suspect]
     Route: 042
     Dates: start: 20130628
  4. TEMODAL [Suspect]
     Indication: GLIOBLASTOMA
     Route: 065
     Dates: start: 201111, end: 201210
  5. TEMODAL [Suspect]
     Route: 065
     Dates: start: 201210
  6. CLONAZEPAM [Concomitant]
     Route: 065
  7. METOCLOPRAMIDE [Concomitant]
     Route: 065
     Dates: end: 20130221
  8. DECADRON [Concomitant]
     Route: 065
  9. ZANTAC [Concomitant]
     Route: 065

REACTIONS (26)
  - Pulmonary embolism [Unknown]
  - Neoplasm [Not Recovered/Not Resolved]
  - Lymphocyte count decreased [Unknown]
  - Weight fluctuation [Not Recovered/Not Resolved]
  - Hemianopia [Not Recovered/Not Resolved]
  - Paralysis [Not Recovered/Not Resolved]
  - Tongue discolouration [Not Recovered/Not Resolved]
  - White blood cell count increased [Unknown]
  - Increased upper airway secretion [Recovered/Resolved]
  - Skin lesion [Not Recovered/Not Resolved]
  - Neutrophil count increased [Unknown]
  - Tongue ulceration [Recovering/Resolving]
  - Platelet count decreased [Unknown]
  - Rash [Not Recovered/Not Resolved]
  - Rash [Recovering/Resolving]
  - Rash [Recovering/Resolving]
  - Dyspnoea exertional [Recovering/Resolving]
  - Fatigue [Unknown]
  - Abdominal discomfort [Recovered/Resolved]
  - Pyrexia [Recovered/Resolved]
  - Fatigue [Not Recovered/Not Resolved]
  - Constipation [Unknown]
  - Lower gastrointestinal haemorrhage [Unknown]
  - Rectal haemorrhage [Unknown]
  - Contusion [Recovering/Resolving]
  - Drug ineffective [Unknown]
